FAERS Safety Report 7707530-5 (Version None)
Quarter: 2011Q3

REPORT INFORMATION
  Report Type: 
  Country: None (occurrence: None)
  Receive Date: 20110824
  Receipt Date: 20110822
  Transmission Date: 20111222
  Serious: Yes (Death)
  Sender: FDA-Public Use
  Company Number: VE-PFIZER INC-2011190992

PATIENT
  Age: 62 Year
  Sex: Male

DRUGS (3)
  1. ASPIRIN [Concomitant]
     Route: 048
  2. OMEPRAZOLE [Concomitant]
     Route: 048
  3. LIPITOR [Suspect]
     Indication: INFARCTION
     Dosage: DOSE UNKNOWN, DAILY
     Route: 048
     Dates: start: 20110407, end: 20110425

REACTIONS (1)
  - CARDIAC ARREST [None]
